FAERS Safety Report 6765265-X (Version None)
Quarter: 2010Q2

REPORT INFORMATION
  Report Type: 
  Country: None (occurrence: None)
  Receive Date: 20100611
  Receipt Date: 20100601
  Transmission Date: 20101027
  Serious: Yes (Other)
  Sender: FDA-Public Use
  Company Number: GB-ELI_LILLY_AND_COMPANY-GB201006000908

PATIENT
  Sex: Female
  Weight: 58.7 kg

DRUGS (6)
  1. PEMETREXED [Suspect]
     Indication: NON-SMALL CELL LUNG CANCER
     Dosage: 500 MG/M2, UNKNOWN
     Route: 042
     Dates: start: 20100423
  2. CISPLATIN [Suspect]
     Indication: NON-SMALL CELL LUNG CANCER
     Dosage: 75 MG/M2, UNKNOWN
     Route: 042
     Dates: start: 20100423
  3. METOCLOPRAMIDE [Concomitant]
     Indication: NAUSEA
     Dosage: 10 MG, AS NEEDED
     Route: 048
     Dates: start: 20100423
  4. FOLIC ACID [Concomitant]
     Dosage: 400 UG, DAILY (1/D)
     Route: 048
     Dates: start: 20100409
  5. VITAMIN B-12 [Concomitant]
     Dosage: 1000 UG, EVERY 9 WEEKS
     Route: 030
     Dates: start: 20100409
  6. PARACETAMOL [Concomitant]
     Indication: ANALGESIC THERAPY
     Dosage: 1 G, UNKNOWN
     Route: 048
     Dates: start: 20100429, end: 20100601

REACTIONS (1)
  - DEEP VEIN THROMBOSIS [None]
